FAERS Safety Report 7623733-2 (Version None)
Quarter: 2011Q3

REPORT INFORMATION
  Report Type: 
  Country: None (occurrence: None)
  Receive Date: 20110720
  Receipt Date: 20110714
  Transmission Date: 20111222
  Serious: Yes (Other)
  Sender: FDA-Public Use
  Company Number: US-GLAXOSMITHKLINE-A0936845A

PATIENT
  Sex: Male

DRUGS (1)
  1. SORIATANE [Suspect]
     Indication: LICHEN PLANUS
     Dosage: 25MG PER DAY
     Route: 048
     Dates: start: 20110101, end: 20110101

REACTIONS (2)
  - OFF LABEL USE [None]
  - ASPARTATE AMINOTRANSFERASE INCREASED [None]
